FAERS Safety Report 19210210 (Version 1)
Quarter: 2021Q2

REPORT INFORMATION
  Report Type: Spontaneous
  Country: US (occurrence: US)
  Receive Date: 20210504
  Receipt Date: 20210504
  Transmission Date: 20210717
  Serious: Yes (Other)
  Sender: FDA-Public Use
  Company Number: US-SUN PHARMACEUTICAL INDUSTRIES LTD-2021R1-294405

PATIENT
  Sex: Male

DRUGS (1)
  1. METOPROLOL. [Suspect]
     Active Substance: METOPROLOL
     Indication: MYOCARDIAL INFARCTION
     Dosage: UNK
     Route: 065

REACTIONS (9)
  - Anxiety [Not Recovered/Not Resolved]
  - Hallucination [Recovered/Resolved]
  - Depression [Recovered/Resolved]
  - Skin burning sensation [Not Recovered/Not Resolved]
  - Nightmare [Recovered/Resolved]
  - Panic attack [Recovered/Resolved]
  - Fatigue [Recovered/Resolved]
  - Schizophrenia [Recovered/Resolved]
  - Suicidal ideation [Recovered/Resolved]
